FAERS Safety Report 15003961 (Version 1)
Quarter: 2018Q2

REPORT INFORMATION
  Report Type: Spontaneous
  Country: US (occurrence: US)
  Receive Date: 20180524
  Receipt Date: 20180524
  Transmission Date: 20180711
  Serious: Yes (Other)
  Sender: FDA-Public Use
  Company Number: None

PATIENT
  Age: 7 Year
  Sex: Male
  Weight: 31.5 kg

DRUGS (9)
  1. MONTELUKAST SODIUM. [Suspect]
     Active Substance: MONTELUKAST SODIUM
     Indication: MULTIPLE ALLERGIES
     Dosage: QUANTITY:1 TABLET(S); AT BEDTIME?
     Route: 048
     Dates: start: 20180515, end: 20180524
  2. CLONIDINE. [Concomitant]
     Active Substance: CLONIDINE
  3. MONTELUKAST SODIUM. [Suspect]
     Active Substance: MONTELUKAST SODIUM
     Indication: ASTHMA
     Dosage: QUANTITY:1 TABLET(S); AT BEDTIME?
     Route: 048
     Dates: start: 20180515, end: 20180524
  4. FLONASE [Concomitant]
     Active Substance: FLUTICASONE PROPIONATE
  5. SYMBICORT [Concomitant]
     Active Substance: BUDESONIDE\FORMOTEROL FUMARATE DIHYDRATE
  6. AMANTIDINE [Concomitant]
     Active Substance: AMANTADINE
  7. ALBUTEROL. [Concomitant]
     Active Substance: ALBUTEROL
  8. RISPERDOL [Concomitant]
  9. CHILDREN^S MULTI VITAMIN [Concomitant]

REACTIONS (6)
  - Asthma [None]
  - Physical assault [None]
  - Abnormal behaviour [None]
  - Headache [None]
  - Mental impairment [None]
  - Crying [None]

NARRATIVE: CASE EVENT DATE: 20180524
